FAERS Safety Report 20218232 (Version 1)
Quarter: 2021Q4

REPORT INFORMATION
  Report Type: Spontaneous
  Country: TN (occurrence: TN)
  Receive Date: 20211222
  Receipt Date: 20211222
  Transmission Date: 20220303
  Serious: Yes (Other)
  Sender: FDA-Public Use
  Company Number: TN-SEBELA IRELAND LIMITED-2021SEB00148

PATIENT
  Age: 43 Year
  Sex: Female

DRUGS (1)
  1. AZATHIOPRINE [Suspect]
     Active Substance: AZATHIOPRINE
     Indication: Crohn^s disease
     Dosage: 2.5 MG/KG, 1X/DAY
     Route: 065
     Dates: start: 2010, end: 201411

REACTIONS (1)
  - Non-cirrhotic portal hypertension [Not Recovered/Not Resolved]

NARRATIVE: CASE EVENT DATE: 20140424
